FAERS Safety Report 7589164-9 (Version None)
Quarter: 2011Q3

REPORT INFORMATION
  Report Type: 
  Country: None (occurrence: None)
  Receive Date: 20110705
  Receipt Date: 20110622
  Transmission Date: 20111222
  Serious: Yes (Life-Threatening, Hospitalization)
  Sender: FDA-Public Use
  Company Number: JP-JNJFOC-20110307503

PATIENT
  Age: 66 Year
  Sex: Female
  Weight: 46 kg

DRUGS (14)
  1. REMICADE [Suspect]
     Route: 042
     Dates: start: 20100428
  2. VITADIN [Concomitant]
     Indication: ANGINA PECTORIS
     Route: 048
  3. REMICADE [Suspect]
     Route: 042
     Dates: start: 20100630
  4. RIBOFLAVIN TAB [Concomitant]
     Indication: ANGINA PECTORIS
     Route: 048
  5. REMICADE [Suspect]
     Indication: RHEUMATOID ARTHRITIS
     Route: 042
     Dates: start: 20100305
  6. REMICADE [Suspect]
     Route: 042
     Dates: start: 20100825
  7. OCRELIZUMAB [Concomitant]
     Indication: RHEUMATOID ARTHRITIS
     Route: 065
  8. LEUCOVORIN CALCIUM [Concomitant]
     Indication: PROPHYLAXIS
     Route: 048
  9. ASPIRIN [Concomitant]
     Indication: ANGINA PECTORIS
     Route: 048
  10. PLAVIX [Concomitant]
     Indication: ANGINA PECTORIS
     Route: 048
  11. LIPITOR [Concomitant]
     Indication: ANGINA PECTORIS
     Route: 048
  12. REMICADE [Suspect]
     Route: 042
     Dates: start: 20101020
  13. REMICADE [Suspect]
     Route: 042
     Dates: start: 20110105
  14. METHOTREXATE [Suspect]
     Indication: RHEUMATOID ARTHRITIS
     Route: 048

REACTIONS (1)
  - HERPES ZOSTER [None]
